FAERS Safety Report 7546438-5 (Version None)
Quarter: 2011Q2

REPORT INFORMATION
  Report Type: 
  Country: None (occurrence: None)
  Receive Date: 20110614
  Receipt Date: 20110531
  Transmission Date: 20111010
  Serious: Yes (Death, Hospitalization)
  Sender: FDA-Public Use
  Company Number: ES-ALEXION-A201100670

PATIENT
  Sex: Male

DRUGS (4)
  1. SOLIRIS [Suspect]
     Dosage: 900 MG, Q2W
     Route: 042
     Dates: start: 20080301
  2. TACROLIMUS [Concomitant]
  3. ANTIBIOTICS [Concomitant]
  4. SOLIRIS [Suspect]
     Indication: PAROXYSMAL NOCTURNAL HAEMOGLOBINURIA
     Dosage: 600 MG, QW
     Route: 042
     Dates: start: 20080201, end: 20080301

REACTIONS (3)
  - ABDOMINAL SEPSIS [None]
  - B-CELL LYMPHOMA [None]
  - INTESTINAL OBSTRUCTION [None]
